FAERS Safety Report 5750293-3 (Version None)
Quarter: 2008Q2

REPORT INFORMATION
  Report Type: 
  Country: None (occurrence: None)
  Receive Date: 20080522
  Receipt Date: 20080522
  Transmission Date: 20081010
  Serious: Yes (Other)
  Sender: FDA-Public Use
  Company Number: None

PATIENT
  Age: 48 Year
  Sex: Male
  Weight: 86.8 kg

DRUGS (7)
  1. LEVOTHYROXINE SODIUM [Suspect]
     Indication: AUTOIMMUNE THYROIDITIS
     Dosage: 200 MCG DAILY PO
     Route: 048
     Dates: start: 20080320, end: 20080520
  2. LEVOTHYROXINE SODIUM [Suspect]
     Indication: HYPOTHYROIDISM
     Dosage: 200 MCG DAILY PO
     Route: 048
     Dates: start: 20080320, end: 20080520
  3. LANTUS [Concomitant]
  4. HUMALOG [Concomitant]
  5. ALTACE [Concomitant]
  6. LIPITOR [Concomitant]
  7. XANAX [Concomitant]

REACTIONS (2)
  - BLOOD THYROID STIMULATING HORMONE INCREASED [None]
  - TYPE 1 DIABETES MELLITUS [None]
